FAERS Safety Report 4632510-6 (Version None)
Quarter: 2005Q2

REPORT INFORMATION
  Report Type: 
  Country: None (occurrence: None)
  Receive Date: 20050411
  Receipt Date: 20050406
  Transmission Date: 20051028
  Serious: Yes (Hospitalization, Other)
  Sender: FDA-Public Use
  Company Number: 05-03-0382

PATIENT
  Age: 46 Year
  Sex: Male
  Weight: 76.6579 kg

DRUGS (5)
  1. CLOZAPINE [Suspect]
     Indication: ANXIETY
     Dosage: 50-20MG QD ORAL
     Route: 048
     Dates: start: 20041130, end: 20050215
  2. CLOZAPINE [Suspect]
     Indication: SCHIZOAFFECTIVE DISORDER
     Dosage: 50-20MG QD ORAL
     Route: 048
     Dates: start: 20041130, end: 20050215
  3. GEODON [Concomitant]
  4. ZOLOFT [Concomitant]
  5. NEXIUM [Concomitant]

REACTIONS (6)
  - CONDITION AGGRAVATED [None]
  - DROOLING [None]
  - DYSPHAGIA [None]
  - GASTRIC STENOSIS [None]
  - PNEUMONIA ASPIRATION [None]
  - POST PROCEDURAL COMPLICATION [None]
